FAERS Safety Report 14580945 (Version 2)
Quarter: 2018Q1

REPORT INFORMATION
  Report Type: Spontaneous
  Country: BR (occurrence: BR)
  Receive Date: 20180228
  Receipt Date: 20180301
  Transmission Date: 20180509
  Serious: Yes (Death, Hospitalization, Other)
  Sender: FDA-Public Use
  Company Number: BR-ALEXION-A201802103

PATIENT
  Sex: Female

DRUGS (5)
  1. SOLIRIS [Suspect]
     Active Substance: ECULIZUMAB
     Dosage: UNK
     Route: 065
     Dates: start: 201711
  2. SOLIRIS [Suspect]
     Active Substance: ECULIZUMAB
     Indication: PAROXYSMAL NOCTURNAL HAEMOGLOBINURIA
     Dosage: 600 MG, QW
     Route: 042
     Dates: start: 20130626, end: 20130717
  3. SOLIRIS [Suspect]
     Active Substance: ECULIZUMAB
     Dosage: 900 MG, Q2W
     Route: 042
     Dates: start: 20130724
  4. SOLIRIS [Suspect]
     Active Substance: ECULIZUMAB
     Dosage: 900 MG, Q2W
     Route: 042
     Dates: end: 20180222
  5. SOLIRIS [Suspect]
     Active Substance: ECULIZUMAB
     Dosage: UNK
     Route: 065
     Dates: end: 201707

REACTIONS (12)
  - Condition aggravated [Unknown]
  - Pyrexia [Unknown]
  - Dyspnoea [Unknown]
  - Liver abscess [Unknown]
  - Hepatic infection [Unknown]
  - Uterine infection [Unknown]
  - Infection [Fatal]
  - Haemoptysis [Unknown]
  - Ascites [Unknown]
  - Platelet count decreased [Unknown]
  - Uterine leiomyoma [Unknown]
  - Inappropriate schedule of drug administration [Unknown]
